FAERS Safety Report 8244873-3 (Version None)
Quarter: 2012Q1

REPORT INFORMATION
  Report Type: 
  Country: None (occurrence: None)
  Receive Date: 20120329
  Receipt Date: 20110719
  Transmission Date: 20120608
  Serious: No
  Sender: FDA-Public Use
  Company Number: US-MYLANLABS-2011S1015235

PATIENT
  Age: 84 Year
  Sex: Male
  Weight: 72.58 kg

DRUGS (6)
  1. AMLODIPINE [Concomitant]
     Indication: BLOOD PRESSURE INCREASED
     Dates: start: 20070101
  2. FENTANYL-100 [Suspect]
     Indication: BACK PAIN
     Dosage: CHANGES Q. 72 HOURS
     Route: 062
     Dates: start: 20110713
  3. SERTRALINE HYDROCHLORIDE [Concomitant]
     Indication: ANXIETY
  4. ZOLPIDEM [Concomitant]
     Indication: INSOMNIA
     Dates: start: 20090101
  5. MEDROXYPROGESTERONE [Concomitant]
     Indication: HOT FLUSH
  6. LEVOTHYROXINE SODIUM [Concomitant]
     Indication: HYPOTHYROIDISM
     Dates: start: 20070101

REACTIONS (2)
  - MICTURITION URGENCY [None]
  - URINARY INCONTINENCE [None]
